FAERS Safety Report 8042671-7 (Version None)
Quarter: 2011Q4

REPORT INFORMATION
  Report Type: 
  Country: None (occurrence: None)
  Receive Date: 20111202
  Receipt Date: 20101005
  Transmission Date: 20120403
  Serious: Yes (Hospitalization, Other)
  Sender: FDA-Public Use
  Company Number: 2008-183726-NL

PATIENT
  Age: 25 Year
  Sex: Female
  Weight: 86.2 kg

DRUGS (3)
  1. GLUCOPHAGE [Concomitant]
  2. PROZAC [Concomitant]
  3. NUVARING [Suspect]
     Indication: CONTRACEPTION
     Dosage: ;VAG
     Route: 067
     Dates: start: 20050401, end: 20050601

REACTIONS (5)
  - PAIN IN EXTREMITY [None]
  - DEEP VEIN THROMBOSIS [None]
  - URINARY TRACT INFECTION [None]
  - CONSTIPATION [None]
  - DEPRESSION [None]
